FAERS Safety Report 7357019-0 (Version None)
Quarter: 2011Q1

REPORT INFORMATION
  Report Type: 
  Country: None (occurrence: None)
  Receive Date: 20110310
  Receipt Date: 20110310
  Transmission Date: 20110831
  Serious: Yes (Death)
  Sender: FDA-Public Use
  Company Number: None

PATIENT
  Age: 26 Year
  Sex: Male
  Weight: 104 kg

DRUGS (1)
  1. IOPAMIDOL [Suspect]
     Indication: COMPUTERISED TOMOGRAM
     Dosage: 125 ML OTHER IV
     Route: 042
     Dates: start: 20101123, end: 20101123

REACTIONS (12)
  - ANAEMIA [None]
  - ANAPHYLACTIC REACTION [None]
  - CARDIAC ARREST [None]
  - MULTI-ORGAN FAILURE [None]
  - RENAL FAILURE [None]
  - LOSS OF CONSCIOUSNESS [None]
  - COAGULOPATHY [None]
  - SHOCK [None]
  - HEPATIC FAILURE [None]
  - VOMITING [None]
  - CARDIAC FAILURE [None]
  - ACIDOSIS [None]
